FAERS Safety Report 9900072 (Version 1)
Quarter: 2014Q1

REPORT INFORMATION
  Report Type: Report from Study
  Country: CA (occurrence: CA)
  Receive Date: 20140214
  Receipt Date: 20140214
  Transmission Date: 20141002
  Serious: Yes (Other)
  Sender: FDA-Public Use
  Company Number: CA-ABBVIE-14P-028-1200812-00

PATIENT
  Age: 77 Year
  Sex: Male

DRUGS (2)
  1. HUMIRA [Suspect]
     Indication: CROHN^S DISEASE
     Route: 058
     Dates: start: 20121206
  2. PRADAXA [Suspect]
     Indication: CARDIAC DISORDER

REACTIONS (6)
  - Peripheral vascular disorder [Not Recovered/Not Resolved]
  - Skin discolouration [Unknown]
  - Vascular occlusion [Unknown]
  - Myocardial infarction [Recovered/Resolved]
  - Myalgia [Unknown]
  - Cardiac disorder [Unknown]
